FAERS Safety Report 9336431 (Version 1)
Quarter: 2013Q2

REPORT INFORMATION
  Report Type: Spontaneous
  Country: PK (occurrence: PK)
  Receive Date: 20130607
  Receipt Date: 20130607
  Transmission Date: 20140414
  Serious: Yes (Death, Hospitalization)
  Sender: FDA-Public Use
  Company Number: PK-ABBOTT-13X-124-1100375-00

PATIENT
  Age: 26 Year
  Sex: Male

DRUGS (1)
  1. SODIUM VALPROATE [Suspect]
     Indication: EPILEPSY

REACTIONS (4)
  - Multi-organ failure [Fatal]
  - Pneumonia [Fatal]
  - Toxic epidermal necrolysis [Fatal]
  - Skin exfoliation [Unknown]
